FAERS Safety Report 7781458-7 (Version None)
Quarter: 2011Q3

REPORT INFORMATION
  Report Type: 
  Country: None (occurrence: None)
  Receive Date: 20110927
  Receipt Date: 20110923
  Transmission Date: 20111222
  Serious: No
  Sender: FDA-Public Use
  Company Number: US-TEVA-302345USA

PATIENT
  Sex: Female

DRUGS (4)
  1. PROAIR HFA [Suspect]
     Indication: ASTHMA
     Route: 055
     Dates: start: 20090101
  2. CLOPIDOGREL [Concomitant]
     Route: 048
  3. ISOSORBIDE DINITRATE [Concomitant]
     Route: 048
  4. ACETYLSALICYLIC ACID SRT [Concomitant]
     Dosage: 81 TABLET;
     Route: 048

REACTIONS (2)
  - DYSPHONIA [None]
  - INCREASED UPPER AIRWAY SECRETION [None]
